FAERS Safety Report 15281492 (Version 1)
Quarter: 2018Q3

REPORT INFORMATION
  Report Type: Spontaneous
  Country: US (occurrence: US)
  Receive Date: 20180731
  Receipt Date: 20180731
  Transmission Date: 20181010
  Serious: Yes (Hospitalization)
  Sender: FDA-Public Use
  Company Number: None

PATIENT
  Age: 27 Year
  Sex: Female

DRUGS (7)
  1. GABAPENTIN. [Concomitant]
     Active Substance: GABAPENTIN
  2. GLATIRAMER [Suspect]
     Active Substance: GLATIRAMER
     Indication: MULTIPLE SCLEROSIS
     Route: 058
     Dates: start: 20180611
  3. DICLOFENAC [Concomitant]
     Active Substance: DICLOFENAC
  4. AMPYRA [Concomitant]
     Active Substance: DALFAMPRIDINE
  5. ESCITALOPRAM [Concomitant]
     Active Substance: ESCITALOPRAM OXALATE
  6. NORTRIPTYLIN [Concomitant]
     Active Substance: NORTRIPTYLINE
  7. BUT/APAP/CAF [Concomitant]

REACTIONS (3)
  - Fatigue [None]
  - Fall [None]
  - Drug dose omission [None]

NARRATIVE: CASE EVENT DATE: 20180721
